FAERS Safety Report 22973941 (Version 4)
Quarter: 2023Q4

REPORT INFORMATION
  Report Type: Spontaneous
  Country: FR (occurrence: FR)
  Receive Date: 20230922
  Receipt Date: 20231129
  Transmission Date: 20240110
  Serious: Yes (Hospitalization)
  Sender: FDA-Public Use
  Company Number: FR-ROCHE-3426837

PATIENT
  Age: 32 Year
  Sex: Female
  Weight: 54 kg

DRUGS (6)
  1. PERJETA [Suspect]
     Active Substance: PERTUZUMAB
     Indication: Breast cancer
     Dosage: LAST DOSE ADMINISTERED ON: 28/AUG/2023 22/AUG/2023
     Route: 065
     Dates: start: 20230510
  2. PERJETA [Suspect]
     Active Substance: PERTUZUMAB
     Dosage: 840MG D1 THEN 420MG EVERY 21 DAYS
     Route: 065
     Dates: start: 20230510
  3. TRAZIMERA [Suspect]
     Active Substance: TRASTUZUMAB-QYYP
     Indication: Breast cancer
     Dosage: MOST RECENT DOSE OF 28/AUG/2023, 480MG D1 THEN 360MG EVERY 21 DAYS
     Route: 065
     Dates: start: 20230510
  4. TRAZIMERA [Suspect]
     Active Substance: TRASTUZUMAB-QYYP
     Route: 065
  5. TAXOL [Concomitant]
     Active Substance: PACLITAXEL
  6. TRASTUZUMAB [Concomitant]
     Active Substance: TRASTUZUMAB
     Route: 065

REACTIONS (5)
  - Rash pustular [Unknown]
  - Migraine [Unknown]
  - Metastases to meninges [Unknown]
  - Headache [Unknown]
  - Optic neuropathy [Not Recovered/Not Resolved]

NARRATIVE: CASE EVENT DATE: 20230619
